FAERS Safety Report 15603099 (Version 1)
Quarter: 2018Q4

REPORT INFORMATION
  Report Type: Spontaneous
  Country: FR (occurrence: FR)
  Receive Date: 20181109
  Receipt Date: 20181109
  Transmission Date: 20190205
  Serious: Yes (Hospitalization, Other)
  Sender: FDA-Public Use
  Company Number: CN-ASTRAZENECA-2018SF44865

PATIENT
  Age: 73 Year
  Sex: Female
  Weight: 48 kg

DRUGS (15)
  1. PROCORALAN [Concomitant]
     Active Substance: IVABRADINE
  2. AMLOR [Concomitant]
     Active Substance: AMLODIPINE BESYLATE
  3. MORPHINE SULFATE. [Interacting]
     Active Substance: MORPHINE SULFATE
     Indication: PAIN
     Route: 065
     Dates: start: 20140801
  4. IVABRADINE HYDROCHLORIDE [Interacting]
     Active Substance: IVABRADINE HYDROCHLORIDE
     Route: 065
  5. ACTISKENAN [Interacting]
     Active Substance: MORPHINE SULFATE
     Indication: PAIN
     Dosage: 5 MG, EVERY 6 HOURS IF NEEDED
     Route: 065
     Dates: end: 201408
  6. INEXIUM [Interacting]
     Active Substance: ESOMEPRAZOLE
     Route: 065
  7. LEVOTHYROX [Concomitant]
     Active Substance: LEVOTHYROXINE
  8. TAHOR [Concomitant]
     Active Substance: ATORVASTATIN CALCIUM
  9. INEXIUM [Suspect]
     Active Substance: ESOMEPRAZOLE
     Route: 065
  10. CARDENSIEL [Concomitant]
     Active Substance: BISOPROLOL FUMARATE
     Dosage: 10 MG, AT LUNCH
  11. PARACETAMOL [Concomitant]
     Active Substance: ACETAMINOPHEN
  12. LYRICA [Interacting]
     Active Substance: PREGABALIN
     Indication: PAIN
     Route: 048
     Dates: end: 201408
  13. ACTISKENAN [Interacting]
     Active Substance: MORPHINE SULFATE
     Indication: PAIN
     Route: 065
     Dates: start: 20180801
  14. TOPALGIC (TRAMADOL HYDROCHLORIDE) [Interacting]
     Active Substance: TRAMADOL HYDROCHLORIDE
     Indication: PAIN
     Dosage: 50 MG, EVERY 6 HOURS IF NEEDED
     Route: 048
  15. JANUVIA [Concomitant]
     Active Substance: SITAGLIPTIN PHOSPHATE

REACTIONS (6)
  - Drug ineffective for unapproved indication [Unknown]
  - Fall [Recovered/Resolved]
  - Renal failure [Unknown]
  - Drug interaction [Recovered/Resolved]
  - Dizziness [Recovered/Resolved]
  - Humerus fracture [Recovered/Resolved]

NARRATIVE: CASE EVENT DATE: 20140801
